FAERS Safety Report 26125679 (Version 1)
Quarter: 2025Q4

REPORT INFORMATION
  Report Type: Spontaneous
  Country: US (occurrence: None)
  Receive Date: 20251204
  Receipt Date: 20251204
  Transmission Date: 20260117
  Serious: Yes (Other)
  Sender: FDA-CTU
  Company Number: None

PATIENT
  Age: 57 Year
  Sex: Female
  Weight: 73.35 kg

DRUGS (10)
  1. RECLAST [Suspect]
     Active Substance: ZOLEDRONIC ACID
     Indication: Osteopenia
     Dates: start: 20251110, end: 20251110
  2. OMEPRAZOLE [Concomitant]
     Active Substance: OMEPRAZOLE
  3. PREMARIN [Concomitant]
     Active Substance: ESTROGENS, CONJUGATED
  4. Flonase equivalent of nasal spray [Concomitant]
  5. MAGNESIUM [Concomitant]
     Active Substance: MAGNESIUM
  6. VITAMIN B COMPLEX [Concomitant]
     Active Substance: CYANOCOBALAMIN\DEXPANTHENOL\NIACINAMIDE\PYRIDOXINE HYDROCHLORIDE\RIBOFLAVIN 5^-PHOSPHATE SODIUM\THIA
  7. D with K [Concomitant]
  8. ALIGN [Concomitant]
     Active Substance: BIFIDOBACTERIUM LONGUM SUBSP. INFANTIS
  9. CLARITIN [Concomitant]
     Active Substance: LORATADINE
  10. calcium chewables [Concomitant]

REACTIONS (10)
  - Hypersensitivity [None]
  - Infusion related reaction [None]
  - Pharyngeal swelling [None]
  - Dysphagia [None]
  - Muscle spasms [None]
  - Bone pain [None]
  - Pain in extremity [None]
  - Tendonitis [None]
  - Musculoskeletal disorder [None]
  - Blood pressure increased [None]

NARRATIVE: CASE EVENT DATE: 20251111
